FAERS Safety Report 4962044-0 (Version None)
Quarter: 2006Q2

REPORT INFORMATION
  Report Type: 
  Country: None (occurrence: None)
  Receive Date: 20060404
  Receipt Date: 20060327
  Transmission Date: 20061013
  Serious: Yes (Death, Hospitalization, Disabling)
  Sender: FDA-Public Use
  Company Number: US-MERCK-0603USA04266

PATIENT
  Sex: Male

DRUGS (2)
  1. VIOXX [Suspect]
     Route: 048
     Dates: start: 20030101, end: 20040325
  2. CELEBREX [Suspect]
     Route: 048

REACTIONS (2)
  - ADVERSE EVENT [None]
  - MYOCARDIAL INFARCTION [None]
